FAERS Safety Report 7533671-1 (Version None)
Quarter: 2011Q2

REPORT INFORMATION
  Report Type: 
  Country: None (occurrence: None)
  Receive Date: 20110608
  Receipt Date: 20060331
  Transmission Date: 20111010
  Serious: Yes (Death, Life-Threatening, Hospitalization)
  Sender: FDA-Public Use
  Company Number: PHNR2006AU00468

PATIENT
  Sex: Male

DRUGS (1)
  1. CLOZAPINE [Suspect]
     Dosage: 0 - 50 MG/DAY
     Dates: start: 20050912

REACTIONS (2)
  - CEREBROVASCULAR ACCIDENT [None]
  - COMA [None]
